FAERS Safety Report 9820291 (Version 1)
Quarter: 2013Q4

REPORT INFORMATION
  Report Type: Spontaneous
  Country: US (occurrence: None)
  Receive Date: 20131223
  Receipt Date: 20131223
  Transmission Date: 20140711
  Serious: No
  Sender: FDA-Public Use
  Company Number: 221261

PATIENT
  Age: 53 Year
  Sex: Male

DRUGS (4)
  1. PICATO [Suspect]
     Indication: ACTINIC KERATOSIS
     Route: 061
     Dates: start: 20130408, end: 20130410
  2. HCTZ (HYDROCHLOROTHIAZIDE) [Concomitant]
  3. LISINOPRIL (LISINOPRIL) [Concomitant]
  4. SYNTHROID (LEVOTHYROXINE SODIUM) [Concomitant]

REACTIONS (4)
  - Application site vesicles [None]
  - Burning sensation [None]
  - Application site pain [None]
  - Application site pruritus [None]
